FAERS Safety Report 8992749 (Version 1)
Quarter: 2013Q1

REPORT INFORMATION
  Report Type: Spontaneous
  Country: FR (occurrence: FR)
  Receive Date: 20130102
  Receipt Date: 20130102
  Transmission Date: 20140127
  Serious: Yes (Death, Life-Threatening)
  Sender: FDA-Public Use
  Company Number: FR-ROCHE-1175752

PATIENT
  Age: 73 Year
  Sex: Female

DRUGS (7)
  1. ACTILYSE [Suspect]
     Indication: ISCHAEMIC STROKE
     Route: 042
     Dates: start: 20100304, end: 20100304
  2. KARDEGIC [Concomitant]
     Route: 048
  3. TAHOR [Concomitant]
     Route: 048
  4. SOTALOL [Concomitant]
     Route: 048
  5. RISORDAN [Concomitant]
     Route: 048
  6. MOLSIDOMINE [Concomitant]
     Route: 048
  7. FENTANYL [Concomitant]

REACTIONS (2)
  - Haemorrhagic transformation stroke [Fatal]
  - Localised oedema [Fatal]
